FAERS Safety Report 19703387 (Version 2)
Quarter: 2021Q3

REPORT INFORMATION
  Report Type: Spontaneous
  Country: US (occurrence: US)
  Receive Date: 20210816
  Receipt Date: 20210924
  Transmission Date: 20211014
  Serious: Yes (Other)
  Sender: FDA-Public Use
  Company Number: US-ROCHE-2887647

PATIENT
  Sex: Female
  Weight: 124.85 kg

DRUGS (3)
  1. DIPHENHIST [Concomitant]
     Active Substance: DIPHENHYDRAMINE HYDROCHLORIDE
  2. ZYRTEC [Concomitant]
     Active Substance: CETIRIZINE HYDROCHLORIDE
  3. ERIVEDGE [Suspect]
     Active Substance: VISMODEGIB
     Indication: SKIN CANCER
     Route: 048
     Dates: start: 20210704

REACTIONS (3)
  - Syncope [Unknown]
  - Ageusia [Unknown]
  - Nausea [Unknown]
